FAERS Safety Report 7125273-6 (Version None)
Quarter: 2010Q4

REPORT INFORMATION
  Report Type: 
  Country: None (occurrence: None)
  Receive Date: 20101129
  Receipt Date: 20101119
  Transmission Date: 20110411
  Serious: Yes (Hospitalization, Other)
  Sender: FDA-Public Use
  Company Number: PHHO2010FR16973

PATIENT
  Sex: Female
  Weight: 76 kg

DRUGS (5)
  1. NEORAL [Suspect]
     Indication: RENAL TRANSPLANT
     Dosage: 280 MG, BID
     Route: 048
     Dates: start: 20101105, end: 20101109
  2. NEORAL [Suspect]
     Dosage: 280 MG, BID
     Route: 048
     Dates: start: 20101112
  3. MYFORTIC [Concomitant]
     Indication: RENAL TRANSPLANT
     Dosage: UNK
  4. SOLU-MEDROL [Concomitant]
     Indication: RENAL TRANSPLANT
     Dosage: UNK
  5. SIMULECT [Concomitant]
     Indication: RENAL TRANSPLANT

REACTIONS (9)
  - ANURIA [None]
  - COMPLICATIONS OF TRANSPLANTED KIDNEY [None]
  - HAEMODIALYSIS [None]
  - KIDNEY FIBROSIS [None]
  - NEPHROPATHY TOXIC [None]
  - POLYURIA [None]
  - RENAL FAILURE [None]
  - RENAL TUBULAR ATROPHY [None]
  - RENAL TUBULAR DISORDER [None]
